FAERS Safety Report 6468306-2 (Version None)
Quarter: 2009Q4

REPORT INFORMATION
  Report Type: 
  Country: None (occurrence: None)
  Receive Date: 20091203
  Receipt Date: 20091201
  Transmission Date: 20100525
  Serious: Yes (Other)
  Sender: FDA-Public Use
  Company Number: US-ASTRAZENECA-2006UW27590

PATIENT
  Age: 488 Month
  Sex: Female
  Weight: 117.9 kg

DRUGS (17)
  1. SEROQUEL [Suspect]
     Indication: DEPRESSION
     Route: 048
     Dates: start: 20000101, end: 20000101
  2. SEROQUEL [Suspect]
     Dosage: 25MG,100MG
     Route: 048
     Dates: start: 20000404, end: 20000608
  3. RISPERDAL [Suspect]
     Indication: DEPRESSION
     Dosage: 1 MG, 4 MG, 5 MG
     Dates: start: 20010101, end: 20061001
  4. RISPERDAL [Suspect]
     Dosage: 0.5MG,1MG, 4MG
     Dates: start: 20010114, end: 20070803
  5. RISPERDAL [Suspect]
     Dosage: 1 MG, 2 MG , 8 MG
  6. ZYPREXA [Suspect]
     Indication: DEPRESSION
     Dosage: 10MG
     Dates: start: 20000122, end: 20000220
  7. ZYPREXA [Suspect]
     Dosage: STRENGTH 10 MG, 15 MG
     Dates: start: 20000224
  8. PROZAC [Concomitant]
     Dosage: 20 MG, 40 MG, 80 MG
     Route: 048
     Dates: start: 19940823
  9. PROZAC [Concomitant]
     Dosage: 20MG,40MG
     Dates: start: 20000101, end: 20050101
  10. COGENTIN [Concomitant]
     Dosage: 1 MG, 2 MG
     Dates: start: 19921119
  11. LOXITANE [Concomitant]
     Route: 048
     Dates: start: 19921119
  12. ABILIFY [Concomitant]
     Dosage: 5MG,10MG,15MG
     Dates: start: 20060101, end: 20070101
  13. GEODON [Concomitant]
     Dates: start: 20070101
  14. LOXAPINE [Concomitant]
     Dates: start: 20000101
  15. CONGENTA [Concomitant]
     Dates: start: 20000101
  16. BUSPAR [Concomitant]
     Dates: start: 20000101
  17. REMERON [Concomitant]
     Dosage: 15MG,30MG
     Dates: start: 20000101

REACTIONS (3)
  - DIABETES MELLITUS [None]
  - DIABETIC NEUROPATHY [None]
  - TYPE 2 DIABETES MELLITUS [None]
